FAERS Safety Report 10892596 (Version 2)
Quarter: 2015Q2

REPORT INFORMATION
  Report Type: Spontaneous
  Country: GB (occurrence: GB)
  Receive Date: 20150306
  Receipt Date: 20150422
  Transmission Date: 20150821
  Serious: Yes (Hospitalization, Other)
  Sender: FDA-Public Use
  Company Number: CHNY2015GB000440

PATIENT
  Sex: Male

DRUGS (2)
  1. NICOTINE GUM [Suspect]
     Active Substance: NICOTINE
     Indication: PRODUCT USED FOR UNKNOWN INDICATION
     Dosage: 4 MG, QD
     Route: 065
     Dates: start: 2011, end: 2013
  2. NICOTINE GUM [Suspect]
     Active Substance: NICOTINE
     Dosage: 2 MG, QD
     Route: 065
     Dates: start: 2013, end: 201408

REACTIONS (9)
  - Myocardial infarction [Unknown]
  - Heart rate increased [Unknown]
  - Hypertension [Recovered/Resolved]
  - Heart rate irregular [Recovered/Resolved]
  - Dyspepsia [Unknown]
  - Nausea [Unknown]
  - Palpitations [Recovered/Resolved]
  - Incorrect drug administration duration [Unknown]
  - Blood urine present [Unknown]

NARRATIVE: CASE EVENT DATE: 201211
